FAERS Safety Report 23766115 (Version 6)
Quarter: 2024Q2

REPORT INFORMATION
  Report Type: Report from Study
  Country: IL (occurrence: IL)
  Receive Date: 20240421
  Receipt Date: 20240521
  Transmission Date: 20240716
  Serious: Yes (Hospitalization)
  Sender: FDA-Public Use
  Company Number: IL-ABBVIE-5727179

PATIENT
  Age: 59 Year
  Sex: Male

DRUGS (2)
  1. CARBIDOPA\LEVODOPA [Suspect]
     Active Substance: CARBIDOPA\LEVODOPA
     Indication: Parkinson^s disease
     Route: 050
     Dates: start: 20190516
  2. CARBIDOPA\LEVODOPA [Suspect]
     Active Substance: CARBIDOPA\LEVODOPA
     Dosage: CONTINUOUS DOSE1.6 ML/HOUR, EXTRA DOSE 1.2 ML
     Route: 050

REACTIONS (5)
  - Feeling abnormal [Recovering/Resolving]
  - Urinary tract infection [Recovering/Resolving]
  - Parkinson^s disease [Unknown]
  - Musculoskeletal stiffness [Unknown]
  - Feeding disorder [Unknown]

NARRATIVE: CASE EVENT DATE: 20240418
